FAERS Safety Report 22628356 (Version 1)
Quarter: 2023Q2

REPORT INFORMATION
  Report Type: Spontaneous
  Country: None (occurrence: US)
  Receive Date: 20230622
  Receipt Date: 20230622
  Transmission Date: 20230721
  Serious: Yes (Other)
  Sender: FDA-Public Use
  Company Number: US-STERISCIENCE B.V.-2023-ST-000145

PATIENT
  Age: 12 Year
  Sex: Female

DRUGS (6)
  1. MIDAZOLAM [Suspect]
     Active Substance: MIDAZOLAM
     Indication: Product used for unknown indication
     Dosage: 2 MILLIGRAM (0.04 MG/KG).
     Route: 042
  2. PROPOFOL [Suspect]
     Active Substance: PROPOFOL
     Indication: Induction of anaesthesia
     Dosage: 100 MILLIGRAM (1.85 MG/KG)
     Route: 065
  3. PROPOFOL [Suspect]
     Active Substance: PROPOFOL
     Indication: Maintenance of anaesthesia
     Dosage: TWO 50 MILLIGRAM, BOLUSES
     Route: 042
  4. PROPOFOL [Suspect]
     Active Substance: PROPOFOL
     Dosage: 150-200 ?G/KG/MIN (TOTAL 2.245GM) , INFUSION
     Route: 042
  5. METHADONE [Suspect]
     Active Substance: METHADONE HYDROCHLORIDE
     Indication: Induction of anaesthesia
     Dosage: 10 MILLIGRAM (0.2 MG/KG)
  6. KETAMINE [Suspect]
     Active Substance: KETAMINE
     Indication: Maintenance of anaesthesia
     Dosage: 15-75 ?G/KG/MIN (TOTAL 483MG)
     Route: 065

REACTIONS (1)
  - Respiratory depression [None]
